FAERS Safety Report 7719735-8 (Version None)
Quarter: 2011Q3

REPORT INFORMATION
  Report Type: 
  Country: None (occurrence: None)
  Receive Date: 20110831
  Receipt Date: 20110823
  Transmission Date: 20111222
  Serious: Yes (Hospitalization)
  Sender: FDA-Public Use
  Company Number: AT-BRISTOL-MYERS SQUIBB COMPANY-15999238

PATIENT
  Age: 71 Year
  Sex: Male
  Weight: 80 kg

DRUGS (10)
  1. CETUXIMAB [Suspect]
     Indication: COLORECTAL CANCER METASTATIC
     Dosage: INITIAL DOSE 400MG/M2 FROM:26MAY2011,250MG/M2: UNK-29JUL2011 LAST DOSE ON 29JUL11 IV INF
     Route: 042
     Dates: start: 20110526
  2. FLUOROURACIL [Suspect]
     Indication: COLORECTAL CANCER METASTATIC
     Dosage: 400MG/M2 BOLUS/:26MAY2011, 2400 MG/M2 D1-D2:26MAY11-22JUL11(57DAYS). LAST DOSE ON 22JUL2011
     Route: 042
     Dates: start: 20110526
  3. ENALAPRIL MALEATE [Concomitant]
     Dates: start: 20110812, end: 20110812
  4. LIDOCAINE [Concomitant]
     Dates: start: 20110805
  5. HEXETIDINE [Concomitant]
     Dates: start: 20110805
  6. ENOXAPARIN [Concomitant]
     Dosage: (12AUG11-14AUG11:DOSE:80MG),(15AUG11-15AUG11:DOSE:120MG).
     Dates: start: 20110812, end: 20110815
  7. LEUCOVORIN CALCIUM [Suspect]
     Indication: COLORECTAL CANCER METASTATIC
     Dosage: LAST DOSE ON 22JUL2011 IV INFUSION
     Route: 042
     Dates: start: 20110526
  8. NYSTATIN [Concomitant]
     Dosage: GARGLE
     Route: 048
     Dates: start: 20110805
  9. SUCRALFATE [Concomitant]
     Dates: start: 20110805
  10. IRINOTECAN HCL [Suspect]
     Indication: COLORECTAL CANCER METASTATIC
     Dosage: IV INFUSION.LAST DOSE ON 22JUL2011(57D)
     Route: 042
     Dates: start: 20110526

REACTIONS (2)
  - STOMATITIS [None]
  - PERITONSILLAR ABSCESS [None]
